FAERS Safety Report 25002143 (Version 4)
Quarter: 2025Q3

REPORT INFORMATION
  Report Type: Spontaneous
  Country: PA (occurrence: PA)
  Receive Date: 20250224
  Receipt Date: 20250711
  Transmission Date: 20251020
  Serious: Yes (Other)
  Sender: AMGEN
  Company Number: PA-PFIZER INC-PV202500020524

PATIENT
  Age: 62 Year
  Sex: Female

DRUGS (1)
  1. ENBREL [Suspect]
     Active Substance: ETANERCEPT
     Indication: Product used for unknown indication
     Route: 065

REACTIONS (3)
  - Disease progression [Not Recovered/Not Resolved]
  - Pain [Unknown]
  - Gait inability [Unknown]
